FAERS Safety Report 24074728 (Version 1)
Quarter: 2024Q3

REPORT INFORMATION
  Report Type: Spontaneous
  Country: IN (occurrence: IN)
  Receive Date: 20240710
  Receipt Date: 20240710
  Transmission Date: 20241016
  Serious: Yes (Hospitalization)
  Sender: PFIZER
  Company Number: IN-PFIZER INC-PV202400055601

PATIENT
  Age: 57 Year
  Sex: Female

DRUGS (7)
  1. LORLATINIB [Suspect]
     Active Substance: LORLATINIB
     Indication: Lung neoplasm malignant
     Dosage: 100 MG, 1X/DAY
     Route: 048
  2. CCM [CALCIUM CARBONATE] [Concomitant]
     Dosage: 500 MG, 1X/DAY
     Route: 048
  3. DOMPERIDONE\PANTOPRAZOLE SODIUM [Concomitant]
     Active Substance: DOMPERIDONE\PANTOPRAZOLE SODIUM
     Dosage: 1 TABLET, 1X/DAY
     Route: 048
  4. ELDOPAR [Concomitant]
     Indication: Diarrhoea
     Dosage: 2 MG, 3X/DAY (ONE TABLET THREE TIMES A DAY)
     Route: 048
  5. PHENIRAMINE [Concomitant]
     Active Substance: PHENIRAMINE
     Dosage: 12.5 MG
     Route: 042
  6. ZOLEDRONIC ACID [Concomitant]
     Active Substance: ZOLEDRONIC ACID
     Dosage: 4 MG
     Route: 042
  7. PIRACETAM [Concomitant]
     Active Substance: PIRACETAM
     Dosage: 500 MG
     Route: 042

REACTIONS (6)
  - Escherichia urinary tract infection [Unknown]
  - Malaise [Unknown]
  - Pyrexia [Unknown]
  - Oedema peripheral [Recovering/Resolving]
  - Chest pain [Unknown]
  - Vomiting [Unknown]

NARRATIVE: CASE EVENT DATE: 20240101
